FAERS Safety Report 16154382 (Version 1)
Quarter: 2019Q2

REPORT INFORMATION
  Report Type: Spontaneous
  Country: FR (occurrence: FR)
  Receive Date: 20190403
  Receipt Date: 20190403
  Transmission Date: 20190711
  Serious: Yes (Other)
  Sender: FDA-Public Use
  Company Number: PHHY2019FR071616

PATIENT
  Age: 7 Year
  Sex: Male
  Weight: 31 kg

DRUGS (1)
  1. SKIACOL [Suspect]
     Active Substance: CYCLOPENTOLATE
     Indication: OPHTHALMOLOGICAL EXAMINATION
     Dosage: 3 GTT, QD
     Route: 047
     Dates: start: 20180928, end: 20180928

REACTIONS (1)
  - Mydriasis [Recovered/Resolved]

NARRATIVE: CASE EVENT DATE: 20180928
